FAERS Safety Report 6651743-0 (Version None)
Quarter: 2010Q1

REPORT INFORMATION
  Report Type: 
  Country: None (occurrence: None)
  Receive Date: 20100325
  Receipt Date: 20100315
  Transmission Date: 20100710
  Serious: Yes (Other)
  Sender: FDA-Public Use
  Company Number: US-ABBOTT-10P-163-0632650-00

PATIENT
  Sex: Female
  Weight: 54.48 kg

DRUGS (7)
  1. LUPRON DEPOT [Suspect]
     Indication: UTERINE LEIOMYOMA
     Route: 030
     Dates: start: 20090801, end: 20091101
  2. SYNTHROID [Concomitant]
     Indication: DRUG USE FOR UNKNOWN INDICATION
     Dates: start: 19960101
  3. CYTOMEL [Concomitant]
     Indication: DRUG USE FOR UNKNOWN INDICATION
     Dates: start: 19960101
  4. SINGULAIR [Concomitant]
     Indication: DRUG USE FOR UNKNOWN INDICATION
  5. CLARITIN [Concomitant]
     Indication: DRUG USE FOR UNKNOWN INDICATION
  6. ADVAIR DISKUS 100/50 [Concomitant]
     Indication: DRUG USE FOR UNKNOWN INDICATION
  7. NEXIUM [Concomitant]
     Indication: DRUG USE FOR UNKNOWN INDICATION

REACTIONS (3)
  - DRUG INEFFECTIVE [None]
  - HAEMOGLOBIN DECREASED [None]
  - VAGINAL HAEMORRHAGE [None]
